FAERS Safety Report 6464246-3 (Version None)
Quarter: 2009Q4

REPORT INFORMATION
  Report Type: 
  Country: None (occurrence: None)
  Receive Date: 20091201
  Receipt Date: 20091125
  Transmission Date: 20100525
  Serious: Yes (Life-Threatening, Hospitalization, Other)
  Sender: FDA-Public Use
  Company Number: PHHY2009DE22246

PATIENT
  Age: 69 Year
  Sex: Female
  Weight: 52 kg

DRUGS (15)
  1. VOLTAREN [Suspect]
     Indication: BONE PAIN
     Dosage: 75 MG, UNK
     Route: 048
     Dates: start: 20080301
  2. EXELON [Interacting]
     Indication: DEMENTIA
     Dosage: 3 MG, UNK
     Route: 048
     Dates: start: 20080301
  3. ASPIRIN [Suspect]
     Indication: ISCHAEMIC HEART DISEASE PROPHYLAXIS
     Dosage: 100 MG/DAY
     Route: 048
     Dates: start: 20080301, end: 20080530
  4. CITALOPRAM HYDROBROMIDE [Interacting]
     Indication: PSYCHOTIC DISORDER DUE TO A GENERAL MEDICAL CONDITION
     Dosage: 30 MG, UNK
     Route: 048
     Dates: start: 20080301
  5. FERRO SANOL COMP [Interacting]
     Dosage: 100 MG, UNK
     Route: 048
     Dates: start: 20080301, end: 20080530
  6. CALCIMAGON-D3 [Concomitant]
     Indication: OSTEOPOROSIS
     Dosage: 1 DF, UNK
     Route: 048
     Dates: start: 20080301
  7. CLOZAPINE [Concomitant]
     Indication: PSYCHOTIC DISORDER DUE TO A GENERAL MEDICAL CONDITION
     Dosage: 25 MG, UNK
     Route: 048
     Dates: start: 20080301
  8. DURAGESIC-100 [Concomitant]
     Indication: BONE PAIN
     Dosage: 4.2 MG, BID
     Route: 062
     Dates: start: 20080301, end: 20080530
  9. LACTULOSE [Concomitant]
     Indication: CONSTIPATION
     Dosage: 5 G, UNK
     Route: 048
     Dates: start: 20080301
  10. MADOPAR [Concomitant]
     Indication: PARKINSON'S DISEASE
     Dosage: 1 DF, UNK
     Route: 048
     Dates: start: 20080301
  11. MOTILIUM [Concomitant]
     Indication: BONE PAIN
     Dosage: 10 MG, TID
     Route: 048
     Dates: start: 20080301
  12. NEXIUM [Concomitant]
     Indication: GASTRITIS
     Dosage: 40 MG, UNK
     Route: 048
     Dates: start: 20080301
  13. CITALOPRAM HYDROBROMIDE [Concomitant]
     Dosage: UNK
  14. TRAMAL [Concomitant]
     Dosage: UNK
  15. PANTOZOL [Concomitant]
     Dosage: UNK

REACTIONS (23)
  - ANAEMIA [None]
  - BLOOD CALCIUM DECREASED [None]
  - BLOOD CREATININE INCREASED [None]
  - BLOOD SODIUM INCREASED [None]
  - C-REACTIVE PROTEIN INCREASED [None]
  - CREATININE RENAL CLEARANCE DECREASED [None]
  - DECREASED APPETITE [None]
  - DEHYDRATION [None]
  - DISTURBANCE IN ATTENTION [None]
  - DRUG INTERACTION [None]
  - DUODENAL ULCER HAEMORRHAGE [None]
  - EROSIVE DUODENITIS [None]
  - FATIGUE [None]
  - GASTRITIS [None]
  - GASTROINTESTINAL HAEMORRHAGE [None]
  - GENERAL PHYSICAL HEALTH DETERIORATION [None]
  - HAEMATOCRIT DECREASED [None]
  - HAEMOGLOBIN DECREASED [None]
  - HELICOBACTER TEST POSITIVE [None]
  - HIATUS HERNIA [None]
  - MELAENA [None]
  - PNEUMONIA [None]
  - WHITE BLOOD CELL COUNT INCREASED [None]
